FAERS Safety Report 5193709-6 (Version None)
Quarter: 2006Q4

REPORT INFORMATION
  Report Type: 
  Country: None (occurrence: None)
  Receive Date: 20061222
  Receipt Date: 20061213
  Transmission Date: 20070319
  Serious: Yes (Hospitalization)
  Sender: FDA-Public Use
  Company Number: 2006PV026865

PATIENT
  Age: 67 Year
  Sex: Female

DRUGS (4)
  1. BYETTA [Suspect]
     Indication: DIABETES MELLITUS NON-INSULIN-DEPENDENT
     Dosage: 10 + 5 MCG; BID; SC - SEE IMAGE
     Route: 058
     Dates: start: 20050101, end: 20050101
  2. BYETTA [Suspect]
     Indication: DIABETES MELLITUS NON-INSULIN-DEPENDENT
     Dosage: 10 + 5 MCG; BID; SC - SEE IMAGE
     Route: 058
     Dates: start: 20050101, end: 20060701
  3. BYETTA [Suspect]
     Indication: DIABETES MELLITUS NON-INSULIN-DEPENDENT
     Dosage: 10 + 5 MCG; BID; SC - SEE IMAGE
     Route: 058
     Dates: start: 20061101, end: 20061201
  4. METFORMIN HCL [Concomitant]

REACTIONS (4)
  - AORTIC STENOSIS [None]
  - BLOOD GLUCOSE INCREASED [None]
  - DIARRHOEA [None]
  - VOMITING PROJECTILE [None]
